FAERS Safety Report 6609402-6 (Version None)
Quarter: 2010Q1

REPORT INFORMATION
  Report Type: 
  Country: None (occurrence: None)
  Receive Date: 20100224
  Receipt Date: 20100216
  Transmission Date: 20100710
  Serious: Yes (Hospitalization)
  Sender: FDA-Public Use
  Company Number: 001590

PATIENT

DRUGS (2)
  1. NEUPRO [Suspect]
     Dosage: (TRANSDERMAL, (12 TRANSDERMAL)
     Route: 062
     Dates: start: 20070112
  2. NEUPRO [Suspect]
     Dosage: (TRANSDERMAL, (12 TRANSDERMAL)
     Route: 062
     Dates: start: 20070829

REACTIONS (1)
  - KNEE OPERATION [None]
